FAERS Safety Report 16006912 (Version 2)
Quarter: 2022Q2

REPORT INFORMATION
  Report Type: Spontaneous
  Country: GB (occurrence: GB)
  Receive Date: 20190226
  Receipt Date: 20220519
  Transmission Date: 20220721
  Serious: Yes (Hospitalization, Other)
  Sender: FDA-Public Use
  Company Number: GB-FLYNN PHARMA LTD.-FLY20190100001

PATIENT
  Sex: Female

DRUGS (1)
  1. PHENYTOIN SODIUM [Suspect]
     Active Substance: PHENYTOIN SODIUM
     Indication: Epilepsy
     Dosage: UNK

REACTIONS (4)
  - Liver injury [Unknown]
  - Stevens-Johnson syndrome [Unknown]
  - Fracture [Unknown]
  - Bone deformity [Unknown]
